FAERS Safety Report 9505872 (Version 1)
Quarter: 2013Q1

REPORT INFORMATION
  Report Type: Spontaneous
  Country: US (occurrence: None)
  Receive Date: 20130219
  Receipt Date: 20130219
  Transmission Date: 20140127
  Serious: Yes (Other)
  Sender: FDA-Public Use
  Company Number: 1207USA010225

PATIENT
  Age: 88 Year
  Sex: Male

DRUGS (6)
  1. ZOCOR (SIMVASTATIN) [Suspect]
     Route: 048
  2. PLAVIX [Suspect]
  3. SIGMART [Suspect]
  4. BAYASPIRIN [Suspect]
  5. TAKEPRON (LANSOPRAZOLE) [Suspect]
  6. NU-LOTAN [Suspect]

REACTIONS (1)
  - Jaundice cholestatic [None]
